FAERS Safety Report 6527246-0 (Version None)
Quarter: 2009Q4

REPORT INFORMATION
  Report Type: 
  Country: None (occurrence: None)
  Receive Date: 20091222
  Receipt Date: 20091012
  Transmission Date: 20100525
  Serious: No
  Sender: FDA-Public Use
  Company Number: ALL1-2009-03162

PATIENT
  Age: 11 Year
  Sex: Female
  Weight: 40.8 kg

DRUGS (2)
  1. VYVANSE [Suspect]
     Indication: ATTENTION DEFICIT/HYPERACTIVITY DISORDER
     Dosage: 20 MG, 1X/DAY:QD, ORAL; 30 MG, ONLY ON SCHOOL DAYS, ORAL
     Route: 048
     Dates: start: 20081101, end: 20091010
  2. VYVANSE [Suspect]
     Indication: ATTENTION DEFICIT/HYPERACTIVITY DISORDER
     Dosage: 20 MG, 1X/DAY:QD, ORAL; 30 MG, ONLY ON SCHOOL DAYS, ORAL
     Route: 048
     Dates: start: 20091011

REACTIONS (4)
  - DISTURBANCE IN ATTENTION [None]
  - IMPULSIVE BEHAVIOUR [None]
  - PRODUCT QUALITY ISSUE [None]
  - RETCHING [None]
